FAERS Safety Report 14179848 (Version 1)
Quarter: 2017Q4

REPORT INFORMATION
  Report Type: Spontaneous
  Country: DK (occurrence: DK)
  Receive Date: 20171110
  Receipt Date: 20171110
  Transmission Date: 20180321
  Serious: Yes (Hospitalization, Disabling)
  Sender: FDA-Public Use
  Company Number: DK-TEVA-823164ROM

PATIENT
  Age: 68 Year
  Sex: Female
  Weight: 75 kg

DRUGS (6)
  1. PAMOL [Concomitant]
     Active Substance: ACETAMINOPHEN
     Indication: PAIN
     Dosage: 2 TABLETS AS NEEDED MAXIMUM 3 TIMES DAILY - STRENGTH: 500 MG
     Route: 048
     Dates: start: 20140508
  2. CAPTOPRIL STADA [Concomitant]
     Indication: HYPERTENSION
     Dosage: STRENGTH: 25 MG - DOSAGE: 2 TABLETS MORNING, 1 TABLET EVENING
     Route: 048
     Dates: start: 20150206, end: 20170825
  3. ATORVASTATIN TEVA [Suspect]
     Active Substance: ATORVASTATIN
     Indication: HYPERCHOLESTEROLAEMIA
     Dosage: 80 MILLIGRAM DAILY;
     Route: 048
     Dates: start: 20170517, end: 20170817
  4. HJERTEMAGNYL [Concomitant]
     Active Substance: ASPIRIN\MAGNESIUM OXIDE
     Indication: THROMBOSIS PROPHYLAXIS
     Dosage: 75 MILLIGRAM DAILY;
     Route: 048
     Dates: start: 20150616, end: 20170825
  5. PANTOPRAZOL AUROBINDO [Concomitant]
     Indication: GASTROOESOPHAGEAL REFLUX DISEASE
     Dosage: 20 MILLIGRAM DAILY;
     Route: 048
     Dates: start: 20130627, end: 20170825
  6. MORFIN ALTERNOVA [Concomitant]
     Indication: PAIN
     Dosage: DOSAGE: 0.5-1 TABLET UP TO FOUR TIMES A DAY, STRENGTH: 10MG
     Route: 048
     Dates: start: 20170811, end: 20170825

REACTIONS (3)
  - Sleep attacks [Recovered/Resolved]
  - Muscle spasms [Recovered/Resolved]
  - Dizziness [Not Recovered/Not Resolved]

NARRATIVE: CASE EVENT DATE: 201707
